FAERS Safety Report 20021651 (Version 1)
Quarter: 2021Q4

REPORT INFORMATION
  Report Type: Spontaneous
  Country: None (occurrence: US)
  Receive Date: 20211101
  Receipt Date: 20211101
  Transmission Date: 20220303
  Serious: Yes (Hospitalization)
  Sender: FDA-Public Use
  Company Number: US-Rite Aid Corporation-2121305

PATIENT
  Age: 16 Year
  Sex: Female

DRUGS (1)
  1. COLD AND FLU RELIEF NIGHTTIME [Suspect]
     Active Substance: ACETAMINOPHEN\DEXTROMETHORPHAN HYDROBROMIDE\DOXYLAMINE SUCCINATE
     Indication: Nasopharyngitis
     Route: 048
     Dates: start: 20211014, end: 20211014

REACTIONS (6)
  - Disorientation [None]
  - Erythema [None]
  - Pallor [None]
  - Cold sweat [None]
  - Vomiting [None]
  - Blood pressure decreased [None]
